FAERS Safety Report 8035987-1 (Version None)
Quarter: 2012Q1

REPORT INFORMATION
  Report Type: 
  Country: None (occurrence: None)
  Receive Date: 20120106
  Receipt Date: 20111222
  Transmission Date: 20120608
  Serious: Yes (Other)
  Sender: FDA-Public Use
  Company Number: FR-1189573

PATIENT
  Sex: Male

DRUGS (2)
  1. TRAVOPROST [Suspect]
     Dosage: ( 1 DROP IN THE EVENING OPHTHALMIC)
     Route: 047
  2. TRAVOPROST [Suspect]
     Dosage: (1 DROP IN THE EVENING OPHTHALMIC)
     Route: 047

REACTIONS (2)
  - BLOOD PRESSURE FLUCTUATION [None]
  - ARRHYTHMIA [None]
